FAERS Safety Report 8176096-0 (Version None)
Quarter: 2012Q1

REPORT INFORMATION
  Report Type: 
  Country: None (occurrence: None)
  Receive Date: 20120228
  Receipt Date: 20120214
  Transmission Date: 20120608
  Serious: Yes (Hospitalization)
  Sender: FDA-Public Use
  Company Number: PNIS20120008

PATIENT
  Age: 72 Year
  Sex: Male

DRUGS (2)
  1. PREDNISOLONE [Suspect]
     Indication: MULTIPLE MYELOMA
  2. RITUXIMAB (RITUXIMAB) [Suspect]
     Indication: MULTIPLE MYELOMA

REACTIONS (2)
  - DISEASE RECURRENCE [None]
  - HEPATITIS B [None]
